FAERS Safety Report 7908374-1 (Version None)
Quarter: 2011Q4

REPORT INFORMATION
  Report Type: 
  Country: None (occurrence: None)
  Receive Date: 20111111
  Receipt Date: 20111028
  Transmission Date: 20120403
  Serious: Yes (Hospitalization)
  Sender: FDA-Public Use
  Company Number: DE-CELGENEUS-062-C5013-09011032

PATIENT
  Age: 70 Year
  Sex: Male
  Weight: 71.8 kg

DRUGS (16)
  1. THALIDOMIDE [Suspect]
     Indication: MULTIPLE MYELOMA
     Dosage: 200 MILLIGRAM
     Route: 048
     Dates: start: 20081016
  2. METAMIZOL [Concomitant]
     Indication: PAIN
     Dosage: 500 MILLIGRAM
     Route: 048
     Dates: start: 20081001
  3. CEFUROXIME [Concomitant]
     Dosage: 500 MILLIGRAM
     Route: 048
     Dates: start: 20081225
  4. LEVOFLOXACIN [Concomitant]
     Indication: INFECTION PROPHYLAXIS
     Dosage: 500 MILLIGRAM
     Route: 048
     Dates: start: 20090106
  5. PANTOPRAZOLE [Concomitant]
     Dosage: 40 MILLIGRAM
     Route: 065
  6. MELPHALAN HYDROCHLORIDE [Suspect]
     Indication: MULTIPLE MYELOMA
     Dosage: .25 MILLIGRAM
     Route: 065
     Dates: start: 20081016
  7. MELPHALAN HYDROCHLORIDE [Suspect]
     Dosage: .125 MILLIGRAM
     Route: 065
     Dates: start: 20090114, end: 20090117
  8. PREDNISONE TAB [Suspect]
     Indication: MULTIPLE MYELOMA
     Dosage: 2 MILLIGRAM/KILOGRAM
     Route: 065
     Dates: start: 20081016
  9. PREDNISONE TAB [Suspect]
     Dosage: 2 MILLIGRAM/KILOGRAM
     Route: 065
     Dates: start: 20090114, end: 20090117
  10. CAPTOPRIL [Concomitant]
     Indication: HYPERTENSION
     Dosage: 37.5 MILLIGRAM
     Route: 048
     Dates: start: 19830101
  11. ASPIRIN [Concomitant]
     Indication: THROMBOSIS PROPHYLAXIS
     Dosage: 100 MILLIGRAM
     Route: 048
     Dates: start: 20081022
  12. THALIDOMIDE [Suspect]
     Dosage: 200 MILLIGRAM
     Route: 048
     Dates: start: 20090114, end: 20090119
  13. ENOXAPARIN [Concomitant]
     Indication: THROMBOSIS PROPHYLAXIS
     Dosage: 40 MILLIGRAM
     Route: 058
     Dates: start: 20090119, end: 20090119
  14. RAMIPRIL [Concomitant]
     Dosage: 1.25 MILLIGRAM
     Route: 065
  15. TRIAMTEREN [Concomitant]
     Dosage: 50 MILLIGRAM
     Route: 065
  16. PAMIFOS [Concomitant]
     Indication: MULTIPLE MYELOMA
     Dosage: 90 MILLIGRAM
     Route: 041
     Dates: start: 20081001

REACTIONS (4)
  - PULMONARY INFARCTION [None]
  - DEEP VEIN THROMBOSIS [None]
  - PULMONARY EMBOLISM [None]
  - PNEUMONIA [None]
